FAERS Safety Report 6135814-3 (Version None)
Quarter: 2009Q1

REPORT INFORMATION
  Report Type: 
  Country: None (occurrence: None)
  Receive Date: 20090327
  Receipt Date: 20090316
  Transmission Date: 20090719
  Serious: Yes (Other)
  Sender: FDA-Public Use
  Company Number: US-B.I. PHARMACEUTICALS,INC./RIDGEFIELD-2009-DE-02337GD

PATIENT
  Sex: Female

DRUGS (10)
  1. PRAMIPEXOLE DIHYDROCHLORIDE [Suspect]
     Indication: RESTLESS LEGS SYNDROME
     Dosage: STARTING DOSE OF 0.125 MG, TITRATED TO 1.5 MG OVER THE NEXT 4 WEEKS
  2. TRAZODONE HCL [Suspect]
     Indication: DEPRESSION
     Dosage: 150MG
  3. TRAZODONE HCL [Suspect]
     Indication: INSOMNIA
  4. LAMOTRIGINE [Suspect]
     Indication: BIPOLAR II DISORDER
     Dosage: 50MG
  5. ESCITALOPRAM [Suspect]
     Indication: DEPRESSION
     Dosage: 20MG
  6. ZOLPIDEM [Suspect]
     Indication: INSOMNIA
  7. TEMAZEPAM [Suspect]
     Indication: INSOMNIA
  8. ALPRAZOLAM [Suspect]
     Indication: INSOMNIA
  9. LEVOTHYROXINE [Concomitant]
     Indication: HYPOTHYROIDISM
     Dosage: 150MCG
  10. CALCIUM SUPPLEMENT [Concomitant]

REACTIONS (7)
  - AKATHISIA [None]
  - DRUG INEFFECTIVE [None]
  - DYSKINESIA [None]
  - HYPERPHAGIA [None]
  - OCULOGYRIC CRISIS [None]
  - SUICIDE ATTEMPT [None]
  - WEIGHT INCREASED [None]
